FAERS Safety Report 24873831 (Version 3)
Quarter: 2025Q2

REPORT INFORMATION
  Report Type: Spontaneous
  Country: US (occurrence: US)
  Receive Date: 20250122
  Receipt Date: 20250514
  Transmission Date: 20250717
  Serious: No
  Sender: ROCHE
  Company Number: US-ROCHE-10000184040

PATIENT
  Sex: Female

DRUGS (3)
  1. ACTEMRA ACTPEN [Suspect]
     Active Substance: TOCILIZUMAB
     Indication: Systemic sclerosis pulmonary
     Route: 058
     Dates: start: 202402
  2. ACTEMRA ACTPEN [Suspect]
     Active Substance: TOCILIZUMAB
     Indication: Dermatomyositis
  3. ACTEMRA ACTPEN [Suspect]
     Active Substance: TOCILIZUMAB
     Indication: Systemic scleroderma

REACTIONS (7)
  - Alopecia [Unknown]
  - Ill-defined disorder [Unknown]
  - Rash pruritic [Unknown]
  - Skin hyperpigmentation [Unknown]
  - Eczema [Unknown]
  - Skin ulcer [Unknown]
  - Dandruff [Unknown]
